FAERS Safety Report 6547959-4 (Version None)
Quarter: 2010Q1

REPORT INFORMATION
  Report Type: 
  Country: None (occurrence: None)
  Receive Date: 20100124
  Receipt Date: 20091116
  Transmission Date: 20100710
  Serious: Yes (Hospitalization)
  Sender: FDA-Public Use
  Company Number: US-ALEXION-A200900942

PATIENT
  Sex: Female

DRUGS (3)
  1. SOLIRIS [Suspect]
     Indication: PAROXYSMAL NOCTURNAL HAEMOGLOBINURIA
     Dosage: UNK
     Route: 042
     Dates: end: 20080901
  2. SOLIRIS [Suspect]
     Dosage: 600 MG, QW
     Route: 042
     Dates: start: 20081015, end: 20081101
  3. SOLIRIS [Suspect]
     Dosage: 900 MG, Q2W
     Route: 042
     Dates: start: 20081101

REACTIONS (1)
  - PAROXYSMAL NOCTURNAL HAEMOGLOBINURIA [None]
